FAERS Safety Report 7961940-X (Version None)
Quarter: 2011Q4

REPORT INFORMATION
  Report Type: 
  Country: None (occurrence: None)
  Receive Date: 20111207
  Receipt Date: 20111201
  Transmission Date: 20120403
  Serious: Yes (Hospitalization)
  Sender: FDA-Public Use
  Company Number: DE-ELI_LILLY_AND_COMPANY-DE201111001209

PATIENT
  Sex: Male

DRUGS (5)
  1. VITAMIN B-12 [Concomitant]
  2. DEXAMETHASONE [Concomitant]
  3. CARBOPLATIN [Concomitant]
  4. FOLIC ACID [Concomitant]
  5. ALIMTA [Suspect]
     Indication: PLEURAL MESOTHELIOMA
     Dosage: 500 MG/M2 PER CYCLE
     Route: 042
     Dates: start: 20110817, end: 20111110

REACTIONS (3)
  - DIZZINESS [None]
  - DISTURBANCE IN ATTENTION [None]
  - FALL [None]
